FAERS Safety Report 9689027 (Version 1)
Quarter: 2013Q4

REPORT INFORMATION
  Report Type: Spontaneous
  Country: IN (occurrence: None)
  Receive Date: 20131112
  Receipt Date: 20131112
  Transmission Date: 20140711
  Serious: Yes (Other)
  Sender: FDA-Public Use
  Company Number: FK201304859

PATIENT
  Age: 27 Year
  Sex: Female

DRUGS (7)
  1. VALPROATE [Suspect]
     Indication: BIPOLAR DISORDER
  2. VALPROATE [Suspect]
  3. LAMOTRIGINE [Suspect]
     Indication: BIPOLAR DISORDER
     Dosage: 100 MG,INCREASED TO THIS OVER 2 WEEKS
  4. LAMOTRIGINE [Suspect]
     Indication: OBSESSIVE-COMPULSIVE DISORDER
     Dosage: 100 MG,INCREASED TO THIS OVER 2 WEEKS
  5. PROPRANOLOL(PROPRANOLOL) [Concomitant]
  6. CLOMIPRAMINE(CLOMIPRAMINE) [Concomitant]
  7. RISPERIDONE(RISPERIDONE) [Concomitant]

REACTIONS (2)
  - Toxic epidermal necrolysis [None]
  - Drug interaction [None]
